FAERS Safety Report 5692878-9 (Version None)
Quarter: 2008Q2

REPORT INFORMATION
  Report Type: 
  Country: None (occurrence: None)
  Receive Date: 20080326
  Receipt Date: 20071226
  Transmission Date: 20081010
  Serious: No
  Sender: FDA-Public Use
  Company Number: US-CVT-070192

PATIENT

DRUGS (2)
  1. RANEXA [Suspect]
     Indication: ANGINA PECTORIS
     Dosage: 1000 MG
  2. ATORVASTATIN/01326101(ATORVASTATIN) [Suspect]

REACTIONS (2)
  - FALL [None]
  - MUSCLE SPASMS [None]
